FAERS Safety Report 22332274 (Version 1)
Quarter: 2023Q2

REPORT INFORMATION
  Report Type: Spontaneous
  Country: US (occurrence: None)
  Receive Date: 20230516
  Receipt Date: 20230516
  Transmission Date: 20230721
  Serious: Yes (Disabling)
  Sender: FDA-Public Use
  Company Number: None

PATIENT
  Age: 30 Year
  Sex: Male
  Weight: 90 kg

DRUGS (13)
  1. LEVOFLOXACIN [Suspect]
     Active Substance: LEVOFLOXACIN
     Indication: Wheezing
     Dosage: FREQUENCY : TWICE A DAY;?
     Route: 048
     Dates: start: 20230301, end: 20230510
  2. ALBUTEROL [Concomitant]
     Active Substance: ALBUTEROL
  3. SYMBICORT [Concomitant]
     Active Substance: BUDESONIDE\FORMOTEROL FUMARATE DIHYDRATE
  4. AZELASTINE [Concomitant]
     Active Substance: AZELASTINE
  5. MONTELUKAST [Concomitant]
     Active Substance: MONTELUKAST SODIUM
  6. MAGNESIUM [Concomitant]
     Active Substance: MAGNESIUM
  7. VITAMIN C [Concomitant]
     Active Substance: ASCORBIC ACID
  8. COLLAGEN [Concomitant]
     Active Substance: COLLAGEN
  9. NUTRAFOL [Concomitant]
  10. reflux gormet [Concomitant]
  11. GAVISCON [Concomitant]
     Active Substance: ALUMINUM HYDROXIDE\MAGNESIUM CARBONATE
  12. MITOCHONDRIAL NRG [Concomitant]
  13. chomdroite [Concomitant]

REACTIONS (3)
  - Tendonitis [None]
  - Tendonitis [None]
  - Tendon disorder [None]

NARRATIVE: CASE EVENT DATE: 20230320
